FAERS Safety Report 16513970 (Version 1)
Quarter: 2019Q3

REPORT INFORMATION
  Report Type: Spontaneous
  Country: US (occurrence: US)
  Receive Date: 20190701
  Receipt Date: 20190701
  Transmission Date: 20191004
  Serious: No
  Sender: FDA-Public Use
  Company Number: US-ROCHE-2280042

PATIENT

DRUGS (11)
  1. FLEXERIL [Concomitant]
     Active Substance: CYCLOBENZAPRINE HYDROCHLORIDE
  2. MORPHINE [Concomitant]
     Active Substance: MORPHINE
  3. SULFASALAZINE. [Concomitant]
     Active Substance: SULFASALAZINE
  4. CELEXA [Concomitant]
     Active Substance: CITALOPRAM HYDROBROMIDE
  5. EFFEXOR [Concomitant]
     Active Substance: VENLAFAXINE HYDROCHLORIDE
  6. KLONOPIN [Suspect]
     Active Substance: CLONAZEPAM
     Indication: PRODUCT USED FOR UNKNOWN INDICATION
     Route: 065
  7. CRESTOR [Concomitant]
     Active Substance: ROSUVASTATIN CALCIUM
  8. FOSAMAX [Concomitant]
     Active Substance: ALENDRONATE SODIUM
  9. DILAUDID [Concomitant]
     Active Substance: HYDROMORPHONE HYDROCHLORIDE
  10. PREDNISONE. [Concomitant]
     Active Substance: PREDNISONE
  11. SUDAFED [Concomitant]
     Active Substance: PSEUDOEPHEDRINE HYDROCHLORIDE

REACTIONS (1)
  - Drug hypersensitivity [Unknown]
